FAERS Safety Report 4312817-2 (Version None)
Quarter: 2004Q1

REPORT INFORMATION
  Report Type: 
  Country: None (occurrence: None)
  Receive Date: 20040304
  Receipt Date: 20031217
  Transmission Date: 20041129
  Serious: Yes (Life-Threatening)
  Sender: FDA-Public Use
  Company Number: S03-UKI-05257-01

PATIENT
  Age: 56 Year
  Sex: Female

DRUGS (12)
  1. ESCITALOPRAM OXALATE [Suspect]
     Indication: DEPRESSION
     Dosage: 20 MG QD PO
     Route: 048
     Dates: end: 20031203
  2. ESCITALOPRAM OXALATE [Suspect]
     Indication: DEPRESSION
     Dosage: 10 MG QD PO
     Route: 048
  3. METOCLOPRAMIDE [Concomitant]
  4. ZOPICLONE [Concomitant]
  5. ESOMEPRAZOLE [Concomitant]
  6. BISOPROLOL [Concomitant]
  7. GTN (GLYCERYL TRINITRATE) [Concomitant]
  8. DIAZEPAM [Concomitant]
  9. ENOXAPARIN SODIUM [Concomitant]
  10. SIMVASTATIN [Concomitant]
  11. PETHIDINE [Concomitant]
  12. DICLOFENAC [Concomitant]

REACTIONS (2)
  - CARDIAC ARREST [None]
  - ELECTROCARDIOGRAM QT PROLONGED [None]
